FAERS Safety Report 19464578 (Version 3)
Quarter: 2021Q3

REPORT INFORMATION
  Report Type: Report from Study
  Country: US (occurrence: US)
  Receive Date: 20210626
  Receipt Date: 20210907
  Transmission Date: 20211014
  Serious: Yes (Hospitalization)
  Sender: FDA-Public Use
  Company Number: NVSC2021US136778

PATIENT
  Sex: Male

DRUGS (1)
  1. ZOLGENSMA [Suspect]
     Active Substance: ONASEMNOGENE ABEPARVOVEC-XIOI
     Indication: SPINAL MUSCULAR ATROPHY
     Dosage: ONCE/SINGLE
     Route: 042
     Dates: start: 20210528, end: 20210528

REACTIONS (3)
  - Decreased appetite [Unknown]
  - Blood pressure increased [Unknown]
  - Laboratory test abnormal [Unknown]
